FAERS Safety Report 5629920-7 (Version None)
Quarter: 2008Q1

REPORT INFORMATION
  Report Type: 
  Country: None (occurrence: None)
  Receive Date: 20080218
  Receipt Date: 20080117
  Transmission Date: 20080703
  Serious: Yes (Hospitalization)
  Sender: FDA-Public Use
  Company Number: US-ROCHE-511287

PATIENT
  Age: 78 Year
  Sex: Female
  Weight: 55.9 kg

DRUGS (3)
  1. CAPECITABINE [Suspect]
     Dosage: 1300 MG, BID
     Route: 065
     Dates: start: 20070508
  2. BLINDED BEVACIZUMAB [Suspect]
     Dosage: 880 MG, Q3W
     Route: 042
     Dates: start: 20070508
  3. BLINDED PLACEBO [Suspect]
     Dosage: 880 MG, Q3W
     Route: 042
     Dates: start: 20070508

REACTIONS (1)
  - SMALL INTESTINAL OBSTRUCTION [None]
